FAERS Safety Report 7718311-0 (Version None)
Quarter: 2011Q3

REPORT INFORMATION
  Report Type: 
  Country: None (occurrence: None)
  Receive Date: 20110830
  Receipt Date: 20110825
  Transmission Date: 20111222
  Serious: No
  Sender: FDA-Public Use
  Company Number: US-PFIZER INC-2011198758

PATIENT
  Sex: Female
  Weight: 63.492 kg

DRUGS (3)
  1. ADVIL LIQUI-GELS [Suspect]
     Indication: ARTHROPATHY
     Dosage: 2PILLS, 2X/DAY
     Route: 048
     Dates: start: 20110801, end: 20110801
  2. ADVIL LIQUI-GELS [Suspect]
     Dosage: 4 PILLS, UNK
     Route: 048
     Dates: start: 20110801
  3. ADVIL LIQUI-GELS [Suspect]
     Dosage: 3 PILLS, 3X/DAY
     Route: 048
     Dates: start: 20110801, end: 20110801

REACTIONS (1)
  - FLATULENCE [None]
